FAERS Safety Report 13840088 (Version 1)
Quarter: 2017Q3

REPORT INFORMATION
  Report Type: Spontaneous
  Country: GB (occurrence: GB)
  Receive Date: 20170807
  Receipt Date: 20170807
  Transmission Date: 20171127
  Serious: Yes (Death, Other)
  Sender: FDA-Public Use
  Company Number: GB-JNJFOC-20170802040

PATIENT

DRUGS (2)
  1. IBRUTINIB [Suspect]
     Active Substance: IBRUTINIB
     Indication: MANTLE CELL LYMPHOMA
     Dosage: PATIENTS WITH B-CLL WERE COMMENCED ON 420MG DAILY; THOSE WITH MCL RECEIVED 540MG DAILY.
     Route: 048
  2. IBRUTINIB [Suspect]
     Active Substance: IBRUTINIB
     Indication: CHRONIC LYMPHOCYTIC LEUKAEMIA
     Dosage: PATIENTS WITH B-CLL WERE COMMENCED ON 420MG DAILY; THOSE WITH MCL RECEIVED 540MG DAILY.
     Route: 048

REACTIONS (5)
  - Arthropathy [Unknown]
  - Arrhythmia [Recovered/Resolved]
  - Diarrhoea [Recovered/Resolved]
  - Haemorrhage intracranial [Fatal]
  - Drug eruption [Recovered/Resolved]
